FAERS Safety Report 14375545 (Version 1)
Quarter: 2018Q1

REPORT INFORMATION
  Report Type: Spontaneous
  Country: US (occurrence: US)
  Receive Date: 20180110
  Receipt Date: 20180110
  Transmission Date: 20180509
  Serious: Yes (Other)
  Sender: FDA-Public Use
  Company Number: None

PATIENT
  Age: 30 Year
  Sex: Male
  Weight: 42 kg

DRUGS (2)
  1. LIORESAL [Suspect]
     Active Substance: BACLOFEN
     Indication: CHEST PAIN
     Route: 037
  2. LIORESAL [Suspect]
     Active Substance: BACLOFEN
     Indication: MUSCLE SPASTICITY
     Route: 037

REACTIONS (7)
  - Confusional state [None]
  - Pyrexia [None]
  - Dyskinesia [None]
  - Sedation [None]
  - Blood pressure increased [None]
  - Tachycardia [None]
  - Muscle spasticity [None]

NARRATIVE: CASE EVENT DATE: 20180104
